FAERS Safety Report 8624072-3 (Version None)
Quarter: 2012Q3

REPORT INFORMATION
  Report Type: 
  Country: None (occurrence: None)
  Receive Date: 20120827
  Receipt Date: 20120827
  Transmission Date: 20120928
  Serious: Yes (Other)
  Sender: FDA-Public Use
  Company Number: ES-009507513-1208ESP010341

PATIENT

DRUGS (2)
  1. PEGASYS [Suspect]
     Dosage: SEMANAL
     Route: 058
     Dates: start: 20110929
  2. REBETOL [Suspect]
     Dosage: 1200/DIA Y PEGASYS SEMANAL.
     Route: 048
     Dates: start: 20110929

REACTIONS (2)
  - NEUTROPENIA [None]
  - ANAEMIA [None]
